FAERS Safety Report 17809459 (Version 1)
Quarter: 2020Q2

REPORT INFORMATION
  Report Type: Spontaneous
  Country: JP (occurrence: JP)
  Receive Date: 20200520
  Receipt Date: 20200520
  Transmission Date: 20200714
  Serious: Yes (Life-Threatening)
  Sender: FDA-Public Use
  Company Number: JP-MYLANLABS-2020M1048909

PATIENT
  Age: 59 Year
  Sex: Female
  Weight: 83 kg

DRUGS (34)
  1. CARBOPLATIN INJ. 50MG ^NK^ [Suspect]
     Active Substance: CARBOPLATIN
     Dosage: 700 MILLIGRAM, QD
     Route: 041
     Dates: start: 20170210, end: 20170210
  2. PACLITAXEL. [Concomitant]
     Active Substance: PACLITAXEL
     Dosage: 300 MILLIGRAM, QD
     Route: 041
     Dates: start: 20170310, end: 20170310
  3. PACLITAXEL. [Concomitant]
     Active Substance: PACLITAXEL
     Dosage: 290 MILLIGRAM, QD
     Route: 041
     Dates: start: 20170721, end: 20170721
  4. SHAKUYAKUKANZOTO [Concomitant]
     Active Substance: HERBALS
     Indication: PAIN
     Dosage: 2.5 GRAM, PRN
     Route: 048
     Dates: start: 20200316
  5. LOXOPROFEN EMEC [Concomitant]
     Active Substance: LOXOPROFEN
     Indication: PAIN
     Dosage: 60 MILLIGRAM, PRN
     Route: 048
     Dates: start: 20200316
  6. CARBOPLATIN INJ. 50MG ^NK^ [Suspect]
     Active Substance: CARBOPLATIN
     Dosage: 575 MILLIGRAM, QD
     Route: 041
     Dates: start: 20171027, end: 20171027
  7. PACLITAXEL. [Concomitant]
     Active Substance: PACLITAXEL
     Indication: OVARIAN CANCER
     Dosage: 300 MILLIGRAM, QD
     Route: 041
     Dates: start: 20170113, end: 20170113
  8. ERISPAN                            /00008502/ [Concomitant]
     Indication: ANXIETY
     Dosage: 0.25 MILLIGRAM, PRN
     Route: 048
  9. CARBOPLATIN INJ. 50MG ^NK^ [Suspect]
     Active Substance: CARBOPLATIN
     Dosage: 700 MILLIGRAM, QD
     Route: 041
     Dates: start: 20170525, end: 20170525
  10. PACLITAXEL. [Concomitant]
     Active Substance: PACLITAXEL
     Dosage: 290 MILLIGRAM, QD
     Route: 041
     Dates: start: 20170825, end: 20170825
  11. TRAVELMIN                          /00141802/ [Concomitant]
     Indication: DIZZINESS
     Dosage: 1 DOSAGE FORM, PRN
     Route: 048
  12. CARBOPLATIN INJ. 50MG ^NK^ [Suspect]
     Active Substance: CARBOPLATIN
     Dosage: 700 MILLIGRAM, QD
     Route: 041
     Dates: start: 20170721, end: 20170721
  13. CARBOPLATIN INJ. 50MG ^NK^ [Suspect]
     Active Substance: CARBOPLATIN
     Dosage: 625 MILLIGRAM, QD
     Route: 041
     Dates: start: 20200417, end: 20200417
  14. PACLITAXEL. [Concomitant]
     Active Substance: PACLITAXEL
     Dosage: 290 MILLIGRAM, QD
     Route: 041
     Dates: start: 20170623, end: 20170623
  15. NOVAMIN                            /00013301/ [Concomitant]
     Active Substance: PROCHLORPERAZINE
     Indication: NAUSEA
     Dosage: 5 MILLIGRAM, PRN
     Route: 048
     Dates: start: 20200316
  16. ROSUVASTATIN DSEP [Concomitant]
     Indication: PRODUCT USED FOR UNKNOWN INDICATION
     Dosage: 5 MILLIGRAM, QD
     Route: 048
  17. GRANISETRON [Concomitant]
     Active Substance: GRANISETRON
     Indication: PRODUCT USED FOR UNKNOWN INDICATION
     Dosage: 3 MILLIGRAM, QD
     Route: 041
     Dates: start: 20200417
  18. CARBOPLATIN INJ. 50MG ^NK^ [Suspect]
     Active Substance: CARBOPLATIN
     Dosage: 700 MILLIGRAM, QD
     Route: 041
     Dates: start: 20170310, end: 20170310
  19. CARBOPLATIN INJ. 50MG ^NK^ [Suspect]
     Active Substance: CARBOPLATIN
     Dosage: 700 MILLIGRAM, QD
     Route: 041
     Dates: start: 20170623, end: 20170623
  20. CARBOPLATIN INJ. 50MG ^NK^ [Suspect]
     Active Substance: CARBOPLATIN
     Dosage: 700 MILLIGRAM, QD
     Route: 041
     Dates: start: 20170825, end: 20170825
  21. CARBOPLATIN INJ. 50MG ^NK^ [Suspect]
     Active Substance: CARBOPLATIN
     Dosage: 625 MILLIGRAM, QD
     Route: 041
     Dates: start: 20200316, end: 20200316
  22. EMEND [Concomitant]
     Active Substance: APREPITANT
     Indication: PRODUCT USED FOR UNKNOWN INDICATION
     Dosage: 125MG ONCE, 1-1.5 HOURS BEFORE ADMINISTRATION OF ANTICANCER DRUG
     Route: 048
     Dates: start: 20200417
  23. CARBOPLATIN INJ. 50MG ^NK^ [Suspect]
     Active Substance: CARBOPLATIN
     Dosage: 575 MILLIGRAM, QD
     Route: 041
     Dates: start: 20170929, end: 20170929
  24. PACLITAXEL. [Concomitant]
     Active Substance: PACLITAXEL
     Dosage: 260 MILLIGRAM, QD
     Route: 041
     Dates: start: 20171027, end: 20171027
  25. PACLITAXEL. [Concomitant]
     Active Substance: PACLITAXEL
     Dosage: 300 MILLIGRAM, QD
     Route: 041
     Dates: start: 20200417, end: 20200417
  26. RESTAMIN KOWA [Concomitant]
     Indication: PRODUCT USED FOR UNKNOWN INDICATION
     Dosage: 50MG ONCE, 30 MINUTES BEFORE ADMINISTRATION OF PACLITAXEL
     Route: 048
     Dates: start: 20200417
  27. PACLITAXEL. [Concomitant]
     Active Substance: PACLITAXEL
     Dosage: 300 MILLIGRAM, QD
     Route: 041
     Dates: start: 20170210, end: 20170210
  28. PACLITAXEL. [Concomitant]
     Active Substance: PACLITAXEL
     Dosage: 300 MILLIGRAM, QD
     Route: 041
     Dates: start: 20170929, end: 20170929
  29. PACLITAXEL. [Concomitant]
     Active Substance: PACLITAXEL
     Dosage: 300 MILLIGRAM, QD
     Route: 041
     Dates: start: 20200316, end: 20200316
  30. DECADRON [Concomitant]
     Active Substance: DEXAMETHASONE
     Indication: PRODUCT USED FOR UNKNOWN INDICATION
     Dosage: 16.5 MILLIGRAM, QD
     Route: 065
     Dates: start: 20200417
  31. CARBOPLATIN INJ. 50MG ^NK^ [Suspect]
     Active Substance: CARBOPLATIN
     Indication: OVARIAN CANCER
     Dosage: 700 MILLIGRAM, QD
     Route: 041
     Dates: start: 20170113, end: 20170113
  32. PACLITAXEL. [Concomitant]
     Active Substance: PACLITAXEL
     Dosage: 290 MILLIGRAM, QD
     Route: 041
     Dates: start: 20170525, end: 20170525
  33. KEISHIKAJUTSUBUTO [Concomitant]
     Active Substance: HERBALS
     Indication: PRODUCT USED FOR UNKNOWN INDICATION
     Dosage: 2.5 GRAM, TID
     Route: 048
     Dates: start: 20200305
  34. GASTER                             /00082102/ [Concomitant]
     Indication: PRODUCT USED FOR UNKNOWN INDICATION
     Dosage: 20 MILLIGRAM, QD
     Route: 065
     Dates: start: 20200417

REACTIONS (1)
  - Anaphylactic shock [Recovered/Resolved]

NARRATIVE: CASE EVENT DATE: 20200417
